FAERS Safety Report 8639692 (Version 3)
Quarter: 2013Q4

REPORT INFORMATION
  Report Type: Spontaneous
  Country: FR (occurrence: FR)
  Receive Date: 20120627
  Receipt Date: 20131031
  Transmission Date: 20140711
  Serious: Yes (Hospitalization)
  Sender: FDA-Public Use
  Company Number: FR-009507513-1206FRA00127

PATIENT
  Age: 65 Year
  Sex: Female
  Weight: 67 kg

DRUGS (9)
  1. JANUMET [Suspect]
     Indication: TYPE 2 DIABETES MELLITUS
     Dosage: 1000/50 MG
     Route: 048
     Dates: start: 201105
  2. AUGMENTIN [Suspect]
     Indication: URINARY TRACT INFECTION
  3. MEDIATENSYL [Concomitant]
     Dosage: 60 MG, BID
     Route: 048
  4. TEMESTA [Concomitant]
  5. LEVOTHYROX [Concomitant]
     Dosage: 25 ?G, QD
     Route: 048
  6. FORLAX [Concomitant]
     Dosage: 1 U, BID
  7. ANAFRANIL [Concomitant]
     Dosage: 10 MG, QD
     Route: 048
  8. AMLOR [Concomitant]
     Dosage: 10 MG, QD
  9. COAPROVEL [Concomitant]
     Dates: start: 2007

REACTIONS (1)
  - Tubulointerstitial nephritis [Not Recovered/Not Resolved]
